FAERS Safety Report 6270711-4 (Version None)
Quarter: 2009Q3

REPORT INFORMATION
  Report Type: 
  Country: None (occurrence: None)
  Receive Date: 20090716
  Receipt Date: 20090707
  Transmission Date: 20100115
  Serious: No
  Sender: FDA-Public Use
  Company Number: JP-EISAI INC.-E2090-00765-SPO-JP

PATIENT
  Sex: Female

DRUGS (11)
  1. EXCEGRAN [Suspect]
     Indication: DRUG USE FOR UNKNOWN INDICATION
     Route: 048
     Dates: start: 20090524, end: 20090526
  2. EXCEGRAN [Suspect]
     Route: 048
     Dates: start: 20090527, end: 20090528
  3. EXCEGRAN [Suspect]
     Route: 048
     Dates: start: 20090529, end: 20090604
  4. EXCEGRAN [Suspect]
     Dates: start: 20090605, end: 20090606
  5. SELENICA-R [Concomitant]
     Route: 048
     Dates: start: 20090406, end: 20090408
  6. SELENICA-R [Concomitant]
     Dates: start: 20090409
  7. MYSTAN [Concomitant]
     Route: 048
     Dates: start: 20090422, end: 20090426
  8. MYSTAN [Concomitant]
     Route: 048
     Dates: start: 20090427, end: 20090506
  9. MYSTAN [Concomitant]
     Route: 048
     Dates: start: 20090507, end: 20090510
  10. MYSTAN [Concomitant]
     Route: 048
     Dates: start: 20090511, end: 20090521
  11. MYSTAN [Concomitant]
     Route: 048
     Dates: start: 20090522

REACTIONS (1)
  - STEVENS-JOHNSON SYNDROME [None]
